FAERS Safety Report 5369567-3 (Version None)
Quarter: 2007Q2

REPORT INFORMATION
  Report Type: 
  Country: None (occurrence: None)
  Receive Date: 20070621
  Receipt Date: 20070605
  Transmission Date: 20071010
  Serious: Yes (Other)
  Sender: FDA-Public Use
  Company Number: US200706000950

PATIENT
  Age: 57 Year
  Sex: Male

DRUGS (3)
  1. HUMALOG [Suspect]
     Indication: DIABETES MELLITUS
     Dates: start: 19970101
  2. HUMULIN R [Suspect]
  3. LANTUS [Concomitant]

REACTIONS (2)
  - BLINDNESS [None]
  - DIABETES MELLITUS INADEQUATE CONTROL [None]
